FAERS Safety Report 15619941 (Version 1)
Quarter: 2018Q4

REPORT INFORMATION
  Report Type: Spontaneous
  Country: US (occurrence: US)
  Receive Date: 20181115
  Receipt Date: 20181115
  Transmission Date: 20190205
  Serious: No
  Sender: FDA-Public Use
  Company Number: US-B.I. PHARMACEUTICALS,INC./RIDGEFIELD-2018-BI-054251

PATIENT
  Sex: Female

DRUGS (1)
  1. ATROVENT [Suspect]
     Active Substance: IPRATROPIUM BROMIDE
     Indication: PRODUCT USED FOR UNKNOWN INDICATION
     Dosage: 2 INHALATIONS TWO TIMES A DAY;   17 MCG; INHALATION AEROSOL?  YES ?ACTION TAKEN DOSE NOT CHANGED
     Route: 055
     Dates: start: 20181008

REACTIONS (1)
  - Foot operation [Not Recovered/Not Resolved]
